FAERS Safety Report 13355489 (Version 2)
Quarter: 2017Q1

REPORT INFORMATION
  Report Type: Report from Study
  Country: DK (occurrence: DK)
  Receive Date: 20170321
  Receipt Date: 20170328
  Transmission Date: 20170429
  Serious: Yes (Hospitalization, Other)
  Sender: FDA-Public Use
  Company Number: DK-BRISTOL-MYERS SQUIBB COMPANY-BMS-2017-022758

PATIENT
  Age: 16 Year
  Sex: Female

DRUGS (3)
  1. ONDANSETRON [Concomitant]
     Active Substance: ONDANSETRON
     Indication: NAUSEA
     Dosage: 8 MG, UNK
     Route: 048
     Dates: start: 20170102
  2. DASATINIB [Suspect]
     Active Substance: DASATINIB
     Indication: GLIOMA
     Dosage: 170 MG, BID
     Route: 048
     Dates: start: 20170102
  3. DASATINIB [Suspect]
     Active Substance: DASATINIB
     Indication: PRODUCT USED FOR UNKNOWN INDICATION
     Dosage: UNK
     Route: 048
     Dates: start: 20170317

REACTIONS (2)
  - Colitis [Recovered/Resolved]
  - Tonsillitis streptococcal [Not Recovered/Not Resolved]

NARRATIVE: CASE EVENT DATE: 20170308
